FAERS Safety Report 9624233 (Version 7)
Quarter: 2014Q2

REPORT INFORMATION
  Report Type: Report from Study
  Country: DE (occurrence: DE)
  Receive Date: 20131015
  Receipt Date: 20140619
  Transmission Date: 20141212
  Serious: Yes (Hospitalization, Other)
  Sender: FDA-Public Use
  Company Number: DE-EXELIXIS-XL18413003423

PATIENT
  Age: 78 Year
  Sex: Male
  Weight: 78 kg

DRUGS (19)
  1. XL184 [Suspect]
     Indication: PROSTATE CANCER
     Dosage: 60 MG, QD
     Route: 048
     Dates: start: 20130819, end: 20130902
  2. XL184 [Suspect]
     Dosage: 40 MG, QD
     Route: 048
     Dates: start: 20130903, end: 20130908
  3. XL184 [Suspect]
     Dosage: 20 MG, QD
     Route: 048
     Dates: start: 20130909, end: 20130912
  4. XL184 [Suspect]
     Indication: PROSTATE CANCER
     Dosage: 5 MG, BID
     Route: 048
     Dates: start: 20130819, end: 20130913
  5. NORVASC [Concomitant]
  6. METOPROLOL [Concomitant]
  7. OMEP [Concomitant]
  8. CALCIMAGON [Concomitant]
  9. XGEVA [Concomitant]
  10. LEUPRORELIN ACETATE [Concomitant]
  11. TAMSULOSIN [Concomitant]
  12. ZOPICLON [Concomitant]
  13. SODIUM CHLORIDE [Concomitant]
  14. CLOBETASOL [Concomitant]
  15. UREA [Concomitant]
  16. CALCIUM [Concomitant]
  17. NOVAMINOSULFON [Concomitant]
  18. ACETYLSALICYLIC ACID [Concomitant]
  19. FORTIMEL [Concomitant]

REACTIONS (6)
  - Cardiac failure [Recovered/Resolved]
  - Hypokalaemia [Recovered/Resolved]
  - Hyponatraemia [Recovered/Resolved]
  - Hypocalcaemia [Not Recovered/Not Resolved]
  - Hypophosphataemia [Not Recovered/Not Resolved]
  - Hypoaldosteronism [Not Recovered/Not Resolved]
